FAERS Safety Report 9255697 (Version 1)
Quarter: 2013Q2

REPORT INFORMATION
  Report Type: Spontaneous
  Country: FR (occurrence: FR)
  Receive Date: 20130425
  Receipt Date: 20130425
  Transmission Date: 20140414
  Serious: Yes (Life-Threatening, Hospitalization)
  Sender: FDA-Public Use
  Company Number: FR-PFIZER INC-2013124548

PATIENT
  Age: 32 Year
  Sex: Female

DRUGS (4)
  1. TAHOR [Suspect]
     Dosage: 1 DF, 1X/DAY
     Route: 048
     Dates: start: 20111221, end: 20111222
  2. PERINDOPRIL [Concomitant]
     Dosage: UNK
  3. BISOPROLOL FUMARATE [Concomitant]
     Dosage: UNK
  4. INEXIUM [Concomitant]
     Dosage: UNK

REACTIONS (4)
  - Erythema [Recovered/Resolved]
  - Pruritus [Recovered/Resolved]
  - Anaphylactic shock [Recovered/Resolved]
  - Acute coronary syndrome [Unknown]
